FAERS Safety Report 9314439 (Version 1)
Quarter: 2013Q2

REPORT INFORMATION
  Report Type: Spontaneous
  Country: US (occurrence: US)
  Receive Date: 20130529
  Receipt Date: 20130529
  Transmission Date: 20140414
  Serious: No
  Sender: FDA-Public Use
  Company Number: US-PFIZER INC-2013160423

PATIENT
  Age: 54 Year
  Sex: Male
  Weight: 121 kg

DRUGS (6)
  1. XELJANZ [Suspect]
     Dosage: 5 MG, 2X/DAY
     Route: 048
  2. ETODOLAC [Concomitant]
     Dosage: 400 MG, UNK
  3. PREDNISONE [Concomitant]
     Dosage: 2.5 MG, UNK
  4. LOSARTAN POTASSIUM [Concomitant]
     Dosage: 100 MG, UNK
  5. AMLODIPINE [Concomitant]
     Dosage: 2.5 MG, UNK
  6. NEXIUM [Concomitant]
     Dosage: 20 MG, UNK

REACTIONS (5)
  - Throat tightness [Unknown]
  - Joint swelling [Unknown]
  - Restlessness [Unknown]
  - Fatigue [Unknown]
  - Dizziness [Unknown]
